FAERS Safety Report 15210487 (Version 1)
Quarter: 2018Q3

REPORT INFORMATION
  Report Type: Report from Study
  Country: US (occurrence: US)
  Receive Date: 20180727
  Receipt Date: 20180727
  Transmission Date: 20181010
  Serious: No
  Sender: FDA-Public Use
  Company Number: US-AMGEN-USASL2018096232

PATIENT
  Sex: Female

DRUGS (2)
  1. REPATHA [Suspect]
     Active Substance: EVOLOCUMAB
     Dosage: 140 MG, Q2WK
     Route: 058
  2. REPATHA [Suspect]
     Active Substance: EVOLOCUMAB
     Indication: HYPERCHOLESTEROLAEMIA
     Dosage: UNK
     Route: 058

REACTIONS (4)
  - Injection site rash [Unknown]
  - Muscular weakness [Unknown]
  - Skin reaction [Unknown]
  - Rash [Unknown]

NARRATIVE: CASE EVENT DATE: 2018
